FAERS Safety Report 23492363 (Version 1)
Quarter: 2024Q1

REPORT INFORMATION
  Report Type: Spontaneous
  Country: US (occurrence: US)
  Receive Date: 20240207
  Receipt Date: 20240207
  Transmission Date: 20240409
  Serious: Yes (Hospitalization)
  Sender: FDA-Public Use
  Company Number: US-AVET LIFESCIENCES LTD-2024-AVET-000027

PATIENT
  Age: 37 Year
  Sex: Female

DRUGS (1)
  1. LABETALOL [Suspect]
     Active Substance: LABETALOL\LABETALOL HYDROCHLORIDE
     Indication: Pre-eclampsia
     Dosage: UNK

REACTIONS (3)
  - Acute hepatic failure [Unknown]
  - Drug-induced liver injury [Unknown]
  - Exposure during pregnancy [Unknown]
